FAERS Safety Report 24451076 (Version 2)
Quarter: 2024Q4

REPORT INFORMATION
  Report Type: Report from Study
  Country: US (occurrence: US)
  Receive Date: 20241017
  Receipt Date: 20241202
  Transmission Date: 20250114
  Serious: Yes (Other)
  Sender: JAZZ
  Company Number: US-JAZZ PHARMACEUTICALS-2024-US-018284

PATIENT
  Age: 50 Year
  Sex: Female

DRUGS (13)
  1. XYWAV [Suspect]
     Active Substance: CALCIUM OXYBATE\MAGNESIUM OXYBATE\POTASSIUM OXYBATE\SODIUM OXYBATE
     Indication: Narcolepsy
     Dosage: 5 GRAM FIRST DOSE AND 4 GRAM SECOND DOSE
  2. XYWAV [Suspect]
     Active Substance: CALCIUM OXYBATE\MAGNESIUM OXYBATE\POTASSIUM OXYBATE\SODIUM OXYBATE
     Indication: Cataplexy
  3. XYWAV [Suspect]
     Active Substance: CALCIUM OXYBATE\MAGNESIUM OXYBATE\POTASSIUM OXYBATE\SODIUM OXYBATE
     Indication: Somnolence
  4. DEPLIN [CALCIUM LEVOMEFOLATE] [Concomitant]
     Indication: Product used for unknown indication
     Dosage: UNK
     Dates: start: 20140129
  5. AMOXICILLIN\CLARITHROMYCIN\ESOMEPRAZOLE [Concomitant]
     Active Substance: AMOXICILLIN\CLARITHROMYCIN\ESOMEPRAZOLE
     Indication: Product used for unknown indication
     Dosage: UNK
     Dates: start: 20140129
  6. VITAMIN D3 [Concomitant]
     Active Substance: CHOLECALCIFEROL
     Indication: Product used for unknown indication
     Dosage: 2,000 UNIT SOFTGEL
     Dates: start: 20140130
  7. SINGULAIR [Concomitant]
     Active Substance: MONTELUKAST SODIUM
     Indication: Product used for unknown indication
     Dosage: UNK
     Dates: start: 20180604
  8. LORAZEPAM [Concomitant]
     Active Substance: LORAZEPAM
     Indication: Product used for unknown indication
     Dosage: UNK
     Dates: start: 20240115
  9. ADVIL 12 HORAS [Concomitant]
     Indication: Product used for unknown indication
     Dosage: UNK
     Dates: start: 20240112
  10. TYLENOL EXTRA STRENGTH [Concomitant]
     Active Substance: ACETAMINOPHEN
     Indication: Product used for unknown indication
     Dosage: 500 MG CAPLET
     Dates: start: 20240112
  11. GABAPENTIN [Concomitant]
     Active Substance: GABAPENTIN
     Indication: Product used for unknown indication
     Dosage: UNK
     Dates: start: 20240515
  12. VEOZAH [Concomitant]
     Active Substance: FEZOLINETANT
     Indication: Product used for unknown indication
     Dosage: UNK
     Dates: start: 20240301
  13. TAMOXIFEN [Concomitant]
     Active Substance: TAMOXIFEN
     Indication: Product used for unknown indication
     Dosage: UNK
     Dates: start: 20240301

REACTIONS (1)
  - Nephrolithiasis [Unknown]

NARRATIVE: CASE EVENT DATE: 20241006
